FAERS Safety Report 21168711 (Version 4)
Quarter: 2022Q4

REPORT INFORMATION
  Report Type: Spontaneous
  Country: US (occurrence: US)
  Receive Date: 20220803
  Receipt Date: 20221019
  Transmission Date: 20230112
  Serious: Yes (Other)
  Sender: FDA-Public Use
  Company Number: US-BRISTOL-MYERS SQUIBB COMPANY-2022-080903

PATIENT
  Age: 62 Year
  Sex: Female

DRUGS (1)
  1. REVLIMID [Suspect]
     Active Substance: LENALIDOMIDE
     Indication: Plasma cell myeloma
     Dosage: FOR 21 DAYS ON THEN 7 DAYS OFF FOR A 28 DAY CYCLE
     Route: 048
     Dates: start: 20220624

REACTIONS (6)
  - Fall [Not Recovered/Not Resolved]
  - Foot fracture [Not Recovered/Not Resolved]
  - Cataract [Unknown]
  - Pain [Unknown]
  - Vomiting [Unknown]
  - Muscle spasms [Unknown]
